FAERS Safety Report 16262412 (Version 1)
Quarter: 2019Q2

REPORT INFORMATION
  Report Type: Spontaneous
  Country: CN (occurrence: CN)
  Receive Date: 20190501
  Receipt Date: 20190501
  Transmission Date: 20190711
  Serious: Yes (Other)
  Sender: FDA-Public Use
  Company Number: CN-BAXTER-2019BAX008510

PATIENT
  Age: 68 Year
  Sex: Female
  Weight: 65 kg

DRUGS (12)
  1. ENDOXAN [Suspect]
     Active Substance: CYCLOPHOSPHAMIDE
     Dosage: ENDOXAN CTX + NS, IVGTT, DOSE RE-INTRODUCED
     Route: 041
  2. 0.9% SODIUM CHLORIDE INJECTION [Suspect]
     Active Substance: SODIUM CHLORIDE
     Dosage: FIRST CHEMOTHERAPY; ENDOXAN CTX + NS, IVGTT
     Route: 041
  3. PHARMORUBICIN?RD [Suspect]
     Active Substance: EPIRUBICIN HYDROCHLORIDE
     Dosage: PHARMORUBICIN RD 140 MG + NS 100 ML IVGTT, SECOND CHEMOTHERAPY
     Route: 041
     Dates: start: 20190220, end: 20190220
  4. 0.9% SODIUM CHLORIDE INJECTION [Suspect]
     Active Substance: SODIUM CHLORIDE
     Dosage: FIRST CHEMOTHERAPY, PHARMORUBICIN RD + NS, IVGTT
     Route: 041
  5. PHARMORUBICIN?RD [Suspect]
     Active Substance: EPIRUBICIN HYDROCHLORIDE
     Dosage: DOSE RE-INTRODUCED, PHARMORUBICIN RD + NS, IVGTT
     Route: 041
  6. ENDOXAN [Suspect]
     Active Substance: CYCLOPHOSPHAMIDE
     Indication: BREAST CANCER FEMALE
     Dosage: FIRST CHEMOTHERAPY
     Route: 041
  7. PHARMORUBICIN?RD [Suspect]
     Active Substance: EPIRUBICIN HYDROCHLORIDE
     Indication: BREAST CANCER FEMALE
     Dosage: FIRST CHEMOTHERAPY
     Route: 041
  8. ENDOXAN [Suspect]
     Active Substance: CYCLOPHOSPHAMIDE
     Dosage: ENDOXAN CTX 1000 MG + NS 50 ML, IVGTT, SECOND CHEMOTHERAPY
     Route: 041
     Dates: start: 20190220, end: 20190220
  9. 0.9% SODIUM CHLORIDE INJECTION [Suspect]
     Active Substance: SODIUM CHLORIDE
     Dosage: ENDOXAN CTX + NS, IVGTT, DOSE RE-INTRODUCED
     Route: 041
  10. 0.9% SODIUM CHLORIDE INJECTION [Suspect]
     Active Substance: SODIUM CHLORIDE
     Dosage: DOSE RE-INTRODUCED, PHARMORUBICIN RD + NS, IVGTT
     Route: 041
  11. 0.9% SODIUM CHLORIDE INJECTION [Suspect]
     Active Substance: SODIUM CHLORIDE
     Indication: MEDICATION DILUTION
     Dosage: SECOND CHEMOTHERAPY; ENDOXAN CTX 1000 MG + NS 50 ML, IVGTT
     Route: 041
     Dates: start: 20190220, end: 20190220
  12. 0.9% SODIUM CHLORIDE INJECTION [Suspect]
     Active Substance: SODIUM CHLORIDE
     Dosage: SECOND CHEMOTHERAPY; PHARMORUBICIN RD 140 MG + NS 100 ML IVGTT
     Route: 041
     Dates: start: 20190220, end: 20190220

REACTIONS (2)
  - Agranulocytosis [Recovered/Resolved]
  - Leukopenia [Recovered/Resolved]

NARRATIVE: CASE EVENT DATE: 20190303
